FAERS Safety Report 20047486 (Version 1)
Quarter: 2021Q4

REPORT INFORMATION
  Report Type: Spontaneous
  Country: NL (occurrence: NL)
  Receive Date: 20211109
  Receipt Date: 20211109
  Transmission Date: 20220303
  Serious: Yes (Other)
  Sender: FDA-Public Use
  Company Number: NL-NOVARTISPH-NVSC2021NL251635

PATIENT

DRUGS (2)
  1. TRAMADOL [Suspect]
     Active Substance: TRAMADOL
     Indication: Product used for unknown indication
     Dosage: 4 DF
     Route: 065
     Dates: start: 2018
  2. ACETAMINOPHEN [Suspect]
     Active Substance: ACETAMINOPHEN
     Indication: Product used for unknown indication
     Dosage: 8 DF
     Route: 065

REACTIONS (5)
  - Sarcoidosis [Unknown]
  - Pain [Unknown]
  - Arthritis [Unknown]
  - Psoriasis [Unknown]
  - Pain in extremity [Unknown]
